FAERS Safety Report 8784871 (Version 2)
Quarter: 2012Q4

REPORT INFORMATION
  Report Type: Report from Study
  Country: IT (occurrence: IT)
  Receive Date: 20120914
  Receipt Date: 20121003
  Transmission Date: 20130627
  Serious: Yes (Other)
  Sender: FDA-Public Use
  Company Number: IT-CELGENEUS-083-21880-12090102

PATIENT
  Age: 70 Year
  Sex: Female

DRUGS (4)
  1. REVLIMID [Suspect]
     Indication: MULTIPLE MYELOMA
     Dosage: 10 Milligram
     Route: 048
     Dates: start: 20120723, end: 20120810
  2. CYCLOPHOSPHAMIDE [Suspect]
     Indication: MULTIPLE MYELOMA
     Dosage: 25 Milligram
     Route: 048
     Dates: start: 20120723, end: 20120810
  3. PREDNISONE [Suspect]
     Indication: MULTIPLE MYELOMA
     Dosage: 12.5 Milligram
     Route: 048
     Dates: start: 20120723, end: 20120810
  4. NORVASC [Concomitant]
     Indication: DRUG USE FOR UNKNOWN INDICATION
     Route: 065

REACTIONS (1)
  - Plasma cell leukaemia [Recovered/Resolved]
